FAERS Safety Report 5993344-3 (Version None)
Quarter: 2008Q4

REPORT INFORMATION
  Report Type: 
  Country: None (occurrence: None)
  Receive Date: 20081210
  Receipt Date: 20081210
  Transmission Date: 20090506
  Serious: No
  Sender: FDA-Public Use
  Company Number: None

PATIENT
  Sex: Female
  Weight: 77.1115 kg

DRUGS (3)
  1. ABILIFY [Suspect]
     Indication: BIPOLAR II DISORDER
     Dosage: 2 MG Q DAILY PO
     Route: 048
     Dates: start: 20080225, end: 20081015
  2. LAMICTAL [Suspect]
     Indication: BIPOLAR II DISORDER
     Dosage: 200 MG Q HS PO
     Route: 048
     Dates: start: 20060117, end: 20081209
  3. LEXAPRO [Concomitant]

REACTIONS (2)
  - RETINAL VEIN OCCLUSION [None]
  - SCOTOMA [None]
